FAERS Safety Report 7330229-4 (Version None)
Quarter: 2011Q1

REPORT INFORMATION
  Report Type: 
  Country: None (occurrence: None)
  Receive Date: 20110303
  Receipt Date: 20110221
  Transmission Date: 20110831
  Serious: Yes (Other)
  Sender: FDA-Public Use
  Company Number: PT-BAYER-2011-003065

PATIENT

DRUGS (1)
  1. IOPROMIDE [Suspect]
     Indication: ANGIOGRAM
     Dosage: UNK
     Dates: start: 20101105, end: 20101105

REACTIONS (2)
  - HEMIANOPIA [None]
  - CEREBROVASCULAR ACCIDENT [None]
